FAERS Safety Report 5796806-7 (Version None)
Quarter: 2008Q2

REPORT INFORMATION
  Report Type: 
  Country: None (occurrence: None)
  Receive Date: 20080630
  Receipt Date: 20080630
  Transmission Date: 20081010
  Serious: No
  Sender: FDA-Public Use
  Company Number: None

PATIENT
  Age: 65 Year
  Sex: Male
  Weight: 79.9 kg

DRUGS (1)
  1. PIPERACILLIN AND TAZOBACTAM [Suspect]
     Indication: ABDOMINAL INFECTION
     Dosage: 4.5 GM ONCE IV
     Route: 042
     Dates: start: 20080503, end: 20080503

REACTIONS (1)
  - ANAPHYLACTIC REACTION [None]
